FAERS Safety Report 5691871-X (Version None)
Quarter: 2008Q1

REPORT INFORMATION
  Report Type: 
  Country: None (occurrence: None)
  Receive Date: 20080331
  Receipt Date: 20080320
  Transmission Date: 20080703
  Serious: Yes (Hospitalization)
  Sender: FDA-Public Use
  Company Number: 100#08#2008-01470

PATIENT
  Age: 42 Year
  Sex: Male

DRUGS (1)
  1. TEGRETOL [Suspect]
     Indication: COMPLEX PARTIAL SEIZURES
     Dosage: 600 MG
     Dates: start: 20020319

REACTIONS (3)
  - DRUG RASH WITH EOSINOPHILIA AND SYSTEMIC SYMPTOMS [None]
  - HEPATITIS ACUTE [None]
  - TOXIC SKIN ERUPTION [None]
